FAERS Safety Report 5489175-3 (Version None)
Quarter: 2007Q4

REPORT INFORMATION
  Report Type: 
  Country: None (occurrence: None)
  Receive Date: 20071016
  Receipt Date: 20070927
  Transmission Date: 20080405
  Serious: Yes (Other)
  Sender: FDA-Public Use
  Company Number: DSA_30735_2007

PATIENT
  Sex: Male
  Weight: 136.0791 kg

DRUGS (11)
  1. DILTIAZEM [Suspect]
     Indication: DRUG USE FOR UNKNOWN INDICATION
     Dosage: 480 MG QD ORAL
     Route: 048
     Dates: start: 20070101
  2. DILTIAZEM [Suspect]
     Indication: DRUG USE FOR UNKNOWN INDICATION
     Dosage: 240 MG QD ORAL
     Route: 048
     Dates: start: 20070101
  3. TIKOSYN [Suspect]
     Indication: ATRIAL FIBRILLATION
     Dosage: 500 MG BID ORAL
     Route: 048
     Dates: start: 20070101
  4. DICLOFENAC [Suspect]
     Indication: DRUG USE FOR UNKNOWN INDICATION
     Dosage: DF ORAL
     Route: 048
     Dates: end: 20070101
  5. BENAZEPRIL HYDROCHLORIDE [Concomitant]
  6. FLOMAX [Concomitant]
  7. COUMADIN [Concomitant]
  8. DOXAZOSIN MESYLATE [Concomitant]
  9. METHOCARBAMOL [Concomitant]
  10. TORSEMIDE [Concomitant]
  11. XOPENEX [Concomitant]

REACTIONS (7)
  - ABNORMAL DREAMS [None]
  - DYSPNOEA [None]
  - FLUID RETENTION [None]
  - OEDEMA PERIPHERAL [None]
  - SWELLING [None]
  - TACHYCARDIA PAROXYSMAL [None]
  - WEIGHT INCREASED [None]
